FAERS Safety Report 13625056 (Version 2)
Quarter: 2017Q3

REPORT INFORMATION
  Report Type: Spontaneous
  Country: RU (occurrence: RU)
  Receive Date: 20170608
  Receipt Date: 20170728
  Transmission Date: 20171127
  Serious: Yes (Hospitalization)
  Sender: FDA-Public Use
  Company Number: RU-BEH-2017080943

PATIENT
  Age: 29 Year
  Sex: Female

DRUGS (1)
  1. HAEMATE P [Suspect]
     Active Substance: ANTIHEMOPHILIC FACTOR HUMAN
     Indication: VON WILLEBRAND^S DISEASE
     Dosage: 2-3 VIALS, TIW, DOSE: N/A
     Route: 042
     Dates: start: 201608

REACTIONS (4)
  - Gingival bleeding [Unknown]
  - Drug ineffective [Recovered/Resolved]
  - Genital haemorrhage [Recovered/Resolved]
  - Uterine haemorrhage [Recovered/Resolved]

NARRATIVE: CASE EVENT DATE: 20170220
